FAERS Safety Report 15904619 (Version 1)
Quarter: 2019Q1

REPORT INFORMATION
  Report Type: Spontaneous
  Country: FR (occurrence: FR)
  Receive Date: 20190204
  Receipt Date: 20190204
  Transmission Date: 20190417
  Serious: Yes (Hospitalization)
  Sender: FDA-Public Use
  Company Number: FR-BIOGEN-2014BI040585

PATIENT
  Age: 36 Year
  Sex: Female
  Weight: 73 kg

DRUGS (2)
  1. AVONEX [Suspect]
     Active Substance: INTERFERON BETA-1A
     Indication: RELAPSING-REMITTING MULTIPLE SCLEROSIS
     Route: 065
     Dates: start: 20131130, end: 20140419
  2. PARACETAMOL [Concomitant]
     Active Substance: ACETAMINOPHEN
     Indication: PRODUCT USED FOR UNKNOWN INDICATION
     Route: 065

REACTIONS (3)
  - Ischaemic stroke [Not Recovered/Not Resolved]
  - Influenza like illness [Unknown]
  - Vertebral artery dissection [Not Recovered/Not Resolved]

NARRATIVE: CASE EVENT DATE: 201404
